FAERS Safety Report 21174183 (Version 1)
Quarter: 2022Q3

REPORT INFORMATION
  Report Type: Spontaneous
  Country: US (occurrence: US)
  Receive Date: 20220804
  Receipt Date: 20220804
  Transmission Date: 20221027
  Serious: Yes (Other)
  Sender: FDA-Public Use
  Company Number: US-ORGANON-O2207USA002374

PATIENT
  Age: 20 Year
  Sex: Female

DRUGS (2)
  1. ETHINYL ESTRADIOL\ETONOGESTREL [Suspect]
     Active Substance: ETHINYL ESTRADIOL\ETONOGESTREL
     Dosage: 1 RING (1 (3 RINGS))
     Route: 067
     Dates: end: 20220723
  2. ETHINYL ESTRADIOL\ETONOGESTREL [Suspect]
     Active Substance: ETHINYL ESTRADIOL\ETONOGESTREL
     Dosage: 1 RING (1 (3 RINGS))
     Route: 067
     Dates: start: 20220723

REACTIONS (5)
  - Device expulsion [Unknown]
  - Medical device site discomfort [Unknown]
  - Product quality issue [Unknown]
  - Intentional medical device removal by patient [Unknown]
  - Incorrect product administration duration [Unknown]

NARRATIVE: CASE EVENT DATE: 20220723
